FAERS Safety Report 7186982-6 (Version None)
Quarter: 2010Q4

REPORT INFORMATION
  Report Type: 
  Country: None (occurrence: None)
  Receive Date: 20101222
  Receipt Date: 20100714
  Transmission Date: 20110411
  Serious: No
  Sender: FDA-Public Use
  Company Number: US-AMGEN-TCS418668

PATIENT

DRUGS (3)
  1. ENBREL [Suspect]
     Indication: ANKYLOSING SPONDYLITIS
     Dosage: UNK UNK, UNK
     Dates: start: 20100608
  2. DULOXETIME HYDROCHLORIDE [Concomitant]
     Dosage: UNK UNK, UNK
     Dates: start: 20100101
  3. DESVENLAFAXINE [Concomitant]
     Dosage: UNK UNK, UNK
     Dates: end: 20100101

REACTIONS (2)
  - DIZZINESS [None]
  - HEADACHE [None]
